FAERS Safety Report 8266246-X (Version None)
Quarter: 2012Q2

REPORT INFORMATION
  Report Type: 
  Country: None (occurrence: None)
  Receive Date: 20120406
  Receipt Date: 20120329
  Transmission Date: 20120825
  Serious: No
  Sender: FDA-Public Use
  Company Number: US-B.I. PHARMACEUTICALS,INC./RIDGEFIELD-2012-BP-05971BP

PATIENT
  Sex: Female

DRUGS (5)
  1. COVEREX [Concomitant]
     Indication: HYPERTENSION
  2. XANAX [Concomitant]
     Indication: INSOMNIA
     Route: 048
  3. AMIODARONE [Concomitant]
     Indication: ATRIAL FIBRILLATION
  4. TORVALIPIN [Concomitant]
     Indication: BLOOD CHOLESTEROL INCREASED
  5. PRADAXA [Suspect]
     Indication: ATRIAL FIBRILLATION
     Dosage: 300 MG
     Route: 048
     Dates: start: 20120101

REACTIONS (2)
  - PAIN [None]
  - CONTUSION [None]
